FAERS Safety Report 19207481 (Version 1)
Quarter: 2021Q2

REPORT INFORMATION
  Report Type: Other
  Country: NL (occurrence: NL)
  Receive Date: 20210503
  Receipt Date: 20210503
  Transmission Date: 20210717
  Serious: Yes (Hospitalization)
  Sender: FDA-Public Use
  Company Number: NL-NOSTRUM LABORATORIES, INC.-2110142

PATIENT
  Age: 28 Year
  Sex: Female

DRUGS (1)
  1. DAPSONE. [Suspect]
     Active Substance: DAPSONE
     Indication: DERMATITIS HERPETIFORMIS
     Route: 048

REACTIONS (1)
  - Methaemoglobinaemia [Recovered/Resolved]
